FAERS Safety Report 5227243-1 (Version None)
Quarter: 2007Q1

REPORT INFORMATION
  Report Type: 
  Country: None (occurrence: None)
  Receive Date: 20070202
  Receipt Date: 20070126
  Transmission Date: 20070707
  Serious: Yes (Death)
  Sender: FDA-Public Use
  Company Number: US-AVENTIS-200618999US

PATIENT
  Sex: Male

DRUGS (22)
  1. LOVENOX [Suspect]
     Dates: start: 20060228, end: 20061219
  2. LOVENOX [Suspect]
     Indication: PULMONARY EMBOLISM
     Dates: start: 20060228, end: 20061219
  3. PREDNISONE [Concomitant]
  4. FOLIC ACID [Concomitant]
  5. CELEBREX [Concomitant]
  6. KLOR-CON [Concomitant]
  7. LOTREL                             /01289101/ [Concomitant]
     Dosage: DOSE: UNK
  8. TOPROL-XL [Concomitant]
  9. PREVACID [Concomitant]
  10. METOCLOPRAMIDE [Concomitant]
  11. CELEXA                             /00582602/ [Concomitant]
  12. FLEXERIL                           /00428402/ [Concomitant]
  13. CLONAZEPAM [Concomitant]
  14. PERCOCET                           /00867901/ [Concomitant]
     Dosage: DOSE: 5/325
  15. TYLENOL EXTRA-STRENGTH [Concomitant]
     Dosage: DOSE: UNK
  16. DULCOLAX                           /00061602/ [Concomitant]
     Dosage: DOSE: UNK
  17. FIBER TABS [Concomitant]
     Dosage: DOSE: UNK
  18. ARANESP [Concomitant]
     Dosage: DOSE: UNK
  19. ALIMTA                             /01493901/ [Concomitant]
     Dosage: DOSE: UNK
  20. GEMZAR [Concomitant]
     Dosage: DOSE: UNK
  21. CARBOPLATIN [Concomitant]
     Dosage: DOSE: UNK
  22. VIT B 12 [Concomitant]
     Dosage: DOSE: UNK

REACTIONS (9)
  - COAGULATION TIME PROLONGED [None]
  - FALL [None]
  - HAEMORRHAGE [None]
  - INJECTION SITE HAEMATOMA [None]
  - INJECTION SITE HAEMORRHAGE [None]
  - INJECTION SITE PAIN [None]
  - LUNG CANCER METASTATIC [None]
  - NEUROLOGICAL SYMPTOM [None]
  - URETHRAL HAEMORRHAGE [None]
